FAERS Safety Report 7229828-X (Version None)
Quarter: 2011Q1

REPORT INFORMATION
  Report Type: 
  Country: None (occurrence: None)
  Receive Date: 20110117
  Receipt Date: 20110106
  Transmission Date: 20110831
  Serious: Yes (Hospitalization)
  Sender: FDA-Public Use
  Company Number: US-CELGENEUS-163-21880-10121058

PATIENT
  Sex: Female

DRUGS (2)
  1. REVLIMID [Suspect]
     Indication: MYELODYSPLASTIC SYNDROME
     Route: 048
     Dates: start: 20100927, end: 20101115
  2. VIDAZA [Concomitant]
     Route: 065
     Dates: start: 20100222, end: 20100907

REACTIONS (4)
  - HEART RATE IRREGULAR [None]
  - PNEUMONIA [None]
  - ANAEMIA [None]
  - NEUTROPENIA [None]
